FAERS Safety Report 8978183 (Version 2)
Quarter: 2012Q4

REPORT INFORMATION
  Report Type: 
  Country: CA (occurrence: CA)
  Receive Date: 20121220
  Receipt Date: 20121221
  Transmission Date: 20130627
  Serious: Yes (Other)
  Sender: FDA-Public Use
  Company Number: PHHY2012CA117159

PATIENT
  Age: 67 Year
  Sex: Male

DRUGS (4)
  1. TAMSULOSIN [Suspect]
     Indication: BENIGN PROSTATIC HYPERPLASIA
     Dosage: 1 DF, QD
     Route: 048
     Dates: start: 20121215, end: 20121215
  2. NAPROXEN [Concomitant]
     Dosage: 1 DF, BID PRN
  3. SIMVASTATIN [Concomitant]
     Dosage: 1 DF, QHS
  4. COVERSYL [Concomitant]
     Dosage: 1 DF, UNK

REACTIONS (3)
  - Hypoaesthesia [Recovering/Resolving]
  - Speech disorder [Recovering/Resolving]
  - Feeling abnormal [Recovering/Resolving]
